FAERS Safety Report 9081609 (Version 1)
Quarter: 2013Q1

REPORT INFORMATION
  Report Type: Report from Study
  Country: US (occurrence: US)
  Receive Date: 20130130
  Receipt Date: 20130130
  Transmission Date: 20140127
  Serious: Yes (Hospitalization)
  Sender: FDA-Public Use
  Company Number: US-ABBOTT-12P-163-0953197-00

PATIENT
  Sex: Female

DRUGS (6)
  1. HUMIRA 40 MG/0.8 ML PEN [Suspect]
     Indication: PSORIASIS
     Dates: start: 2009
  2. HUMALOG [Concomitant]
     Indication: DIABETES MELLITUS
  3. LANTUS [Concomitant]
     Indication: DIABETES MELLITUS
  4. UNKNOWN BLOOD PRESSUE PILL [Concomitant]
     Indication: PRODUCT USED FOR UNKNOWN INDICATION
  5. UNKNOWN WATER PILL [Concomitant]
     Indication: PRODUCT USED FOR UNKNOWN INDICATION
  6. GABAPENTINE [Concomitant]
     Indication: NEUROPATHY PERIPHERAL

REACTIONS (1)
  - Respiratory disorder [Recovered/Resolved]
